FAERS Safety Report 8350988-1 (Version None)
Quarter: 2012Q2

REPORT INFORMATION
  Report Type: 
  Country: None (occurrence: None)
  Receive Date: 20120510
  Receipt Date: 20120426
  Transmission Date: 20120825
  Serious: Yes (Hospitalization, Other)
  Sender: FDA-Public Use
  Company Number: CHPA2012US009975

PATIENT
  Age: 60 Year
  Sex: Female

DRUGS (2)
  1. MAALOX ANTACID/ANTIGAS MAX LIQ [Suspect]
     Indication: GASTROOESOPHAGEAL REFLUX DISEASE
     Dosage: ONE SWALLOW AT A TIME, AS NEEDED
     Route: 048
  2. ATIVAN [Concomitant]
     Indication: NERVOUSNESS
     Dosage: 1 MG, BID

REACTIONS (21)
  - DYSPNOEA [None]
  - PAIN IN EXTREMITY [None]
  - DIZZINESS [None]
  - WRIST FRACTURE [None]
  - CHRONIC OBSTRUCTIVE PULMONARY DISEASE [None]
  - TOOTH FRACTURE [None]
  - LACERATION [None]
  - ROAD TRAFFIC ACCIDENT [None]
  - THERAPEUTIC RESPONSE UNEXPECTED [None]
  - EMPHYSEMA [None]
  - LOSS OF CONSCIOUSNESS [None]
  - EYE SWELLING [None]
  - HYPOTENSION [None]
  - CLAVICLE FRACTURE [None]
  - HYPERTENSION [None]
  - PARAESTHESIA [None]
  - PALPITATIONS [None]
  - OFF LABEL USE [None]
  - HYPOAESTHESIA [None]
  - DISEASE RECURRENCE [None]
  - WRONG TECHNIQUE IN DRUG USAGE PROCESS [None]
